FAERS Safety Report 18882484 (Version 1)
Quarter: 2021Q1

REPORT INFORMATION
  Report Type: Spontaneous
  Country: AR (occurrence: AR)
  Receive Date: 20210212
  Receipt Date: 20210212
  Transmission Date: 20210420
  Serious: Yes (Other)
  Sender: FDA-Public Use
  Company Number: AR-MACLEODS PHARMACEUTICALS US LTD-MAC2021030119

PATIENT

DRUGS (3)
  1. TENOFOVIR [Suspect]
     Active Substance: TENOFOVIR
     Indication: HIV INFECTION
     Dosage: UNK
     Route: 065
  2. LAMIVUDINE. [Concomitant]
     Active Substance: LAMIVUDINE
     Indication: HIV INFECTION
     Dosage: UNK
     Route: 065
  3. LOPINAVIR/RITONAVIR [Concomitant]
     Active Substance: LOPINAVIR\RITONAVIR
     Indication: HIV INFECTION
     Dosage: UNK
     Route: 065

REACTIONS (13)
  - Scoliosis [Recovering/Resolving]
  - Spinal fracture [Unknown]
  - Tibia fracture [Unknown]
  - Femur fracture [Unknown]
  - Humerus fracture [Unknown]
  - Hip fracture [Unknown]
  - Osteomalacia [Recovering/Resolving]
  - Hypophosphataemia [Recovered/Resolved]
  - Patella fracture [Unknown]
  - Kyphosis [Recovering/Resolving]
  - Fanconi syndrome [Recovering/Resolving]
  - Hypocalcaemia [Recovered/Resolved]
  - Fatigue [Recovering/Resolving]
